FAERS Safety Report 12091710 (Version 1)
Quarter: 2016Q1

REPORT INFORMATION
  Report Type: Spontaneous
  Country: US (occurrence: US)
  Receive Date: 20160218
  Receipt Date: 20160218
  Transmission Date: 20160526
  Serious: No
  Sender: FDA-Public Use
  Company Number: US-ASTRAZENECA-2016SE16036

PATIENT
  Age: 80 Year
  Sex: Female

DRUGS (1)
  1. NEXIUM 24HR [Suspect]
     Active Substance: ESOMEPRAZOLE MAGNESIUM
     Indication: DISCOMFORT
     Route: 048

REACTIONS (3)
  - Malaise [Unknown]
  - Discomfort [Unknown]
  - Product use issue [Unknown]
